FAERS Safety Report 6195038-0 (Version None)
Quarter: 2009Q2

REPORT INFORMATION
  Report Type: 
  Country: None (occurrence: None)
  Receive Date: 20090519
  Receipt Date: 20090508
  Transmission Date: 20091009
  Serious: Yes (Other)
  Sender: FDA-Public Use
  Company Number: HQWYE135710AUG04

PATIENT
  Sex: Female

DRUGS (5)
  1. PREMPRO [Suspect]
  2. ESTROGENS [Suspect]
  3. ESTRADIOL [Suspect]
  4. CONJUGATED ESTROGENS [Suspect]
  5. PROVERA [Suspect]

REACTIONS (10)
  - BREAST CANCER METASTATIC [None]
  - DRUG HYPERSENSITIVITY [None]
  - FACIAL NERVE DISORDER [None]
  - HERPES ZOSTER [None]
  - LYMPHOEDEMA [None]
  - METASTASES TO BONE [None]
  - METASTASES TO LYMPH NODES [None]
  - METASTASES TO SPINE [None]
  - POST PROCEDURAL COMPLICATION [None]
  - SPINAL FRACTURE [None]
